FAERS Safety Report 17796515 (Version 1)
Quarter: 2020Q2

REPORT INFORMATION
  Report Type: Spontaneous
  Country: US (occurrence: US)
  Receive Date: 20200518
  Receipt Date: 20200518
  Transmission Date: 20200714
  Serious: No
  Sender: FDA-Public Use
  Company Number: US-CIPLA LTD.-2020US02941

PATIENT

DRUGS (1)
  1. TESTOSTERONE. [Suspect]
     Active Substance: TESTOSTERONE
     Indication: ANDROGEN DEFICIENCY
     Dosage: 1.5 ML ONCE EVERY THREE WEEKS (1 ML VIAL; UNKNOWN MANUFACTURER) FROM PAST 7-8 MONTHS
     Route: 030
     Dates: start: 2019

REACTIONS (3)
  - Unevaluable event [Unknown]
  - Multiple use of single-use product [Unknown]
  - Depression [Unknown]

NARRATIVE: CASE EVENT DATE: 2019
